FAERS Safety Report 15686190 (Version 1)
Quarter: 2018Q4

REPORT INFORMATION
  Report Type: Spontaneous
  Country: IT (occurrence: IT)
  Receive Date: 20181204
  Receipt Date: 20181204
  Transmission Date: 20190205
  Serious: Yes (Hospitalization)
  Sender: FDA-Public Use
  Company Number: IT-TEVA-2018-IT-981513

PATIENT
  Age: 55 Year
  Sex: Female
  Weight: 62 kg

DRUGS (2)
  1. OXALIPLATINO ACCORD HEALTHCARE [Suspect]
     Active Substance: OXALIPLATIN
     Route: 042
     Dates: start: 20171229, end: 20171229
  2. CAPECITABINE. [Suspect]
     Active Substance: CAPECITABINE
     Route: 065
     Dates: start: 20171229, end: 20171229

REACTIONS (1)
  - Laryngospasm [Recovered/Resolved]

NARRATIVE: CASE EVENT DATE: 20171229
